FAERS Safety Report 7576198-3 (Version None)
Quarter: 2011Q2

REPORT INFORMATION
  Report Type: 
  Country: None (occurrence: None)
  Receive Date: 20110628
  Receipt Date: 20110519
  Transmission Date: 20111010
  Serious: Yes (Hospitalization, Other)
  Sender: FDA-Public Use
  Company Number: US-BAYER-2011-028604

PATIENT
  Sex: Female
  Weight: 102.4 kg

DRUGS (3)
  1. ZYRTEC [Concomitant]
     Indication: MULTIPLE ALLERGIES
     Dosage: UNK UNK, QD
     Dates: start: 20040101, end: 20110101
  2. YAZ [Suspect]
     Indication: POLYCYSTIC OVARIES
     Dosage: UNK UNK, QD
     Route: 048
     Dates: start: 20080801, end: 20090421
  3. SINGULAIR [Concomitant]
     Indication: ASTHMA
     Dosage: UNK UNK, QD
     Dates: start: 20040101

REACTIONS (4)
  - INJURY [None]
  - SPEECH DISORDER [None]
  - ISCHAEMIC CEREBRAL INFARCTION [None]
  - CEREBROVASCULAR ACCIDENT [None]
